FAERS Safety Report 11117284 (Version 1)
Quarter: 2015Q2

REPORT INFORMATION
  Report Type: Spontaneous
  Country: US (occurrence: US)
  Receive Date: 20150515
  Receipt Date: 20150515
  Transmission Date: 20150821
  Serious: Yes (Other)
  Sender: FDA-Public Use
  Company Number: US-GILEAD-2015-0152944

PATIENT
  Age: 65 Year
  Sex: Male

DRUGS (6)
  1. RIFAXIMIN [Concomitant]
     Active Substance: RIFAXIMIN
  2. ALDACTONE [Concomitant]
     Active Substance: SPIRONOLACTONE
     Indication: ASCITES
  3. HARVONI [Suspect]
     Active Substance: LEDIPASVIR\SOFOSBUVIR
     Indication: HEPATITIS C
     Dosage: 1 DF, QD
     Route: 048
     Dates: start: 20141104, end: 20150421
  4. LASIX [Concomitant]
     Active Substance: FUROSEMIDE
     Indication: ASCITES
  5. INSULIN [Concomitant]
     Active Substance: INSULIN NOS
     Indication: DIABETES MELLITUS
  6. CIPROFLOXACIN. [Concomitant]
     Active Substance: CIPROFLOXACIN
     Indication: PERITONITIS BACTERIAL

REACTIONS (7)
  - Abdominal distension [Unknown]
  - Weight decreased [Unknown]
  - Decreased appetite [Unknown]
  - Hepatic cirrhosis [Unknown]
  - Fatigue [Unknown]
  - Urine output decreased [Unknown]
  - Insomnia [Unknown]
